FAERS Safety Report 7532995-1 (Version None)
Quarter: 2011Q2

REPORT INFORMATION
  Report Type: 
  Country: None (occurrence: None)
  Receive Date: 20110608
  Receipt Date: 20110602
  Transmission Date: 20111010
  Serious: Yes (Death)
  Sender: FDA-Public Use
  Company Number: US-CELGENEUS-163-21880-11052116

PATIENT
  Sex: Female

DRUGS (5)
  1. LASIX [Concomitant]
     Dosage: 20 MILLIGRAM
     Route: 065
     Dates: start: 20100101, end: 20110101
  2. AMIODARONE HCL [Concomitant]
     Dosage: 200 MILLIGRAM
     Route: 065
     Dates: start: 20100101, end: 20110101
  3. METOPROLOL [Concomitant]
     Dosage: 50 MILLIGRAM
     Route: 065
     Dates: start: 20100101, end: 20110101
  4. ARICEPT [Concomitant]
     Dosage: 20 MILLIGRAM
     Route: 065
     Dates: start: 20080101, end: 20110101
  5. REVLIMID [Suspect]
     Indication: MULTIPLE MYELOMA
     Dosage: 5 MILLIGRAM
     Route: 048
     Dates: start: 20091023, end: 20110516

REACTIONS (1)
  - CARDIOMYOPATHY [None]
